FAERS Safety Report 6486756-5 (Version None)
Quarter: 2009Q4

REPORT INFORMATION
  Report Type: 
  Country: None (occurrence: None)
  Receive Date: 20091210
  Receipt Date: 20091204
  Transmission Date: 20100525
  Serious: Yes (Death)
  Sender: FDA-Public Use
  Company Number: US-ELI_LILLY_AND_COMPANY-US200912001849

PATIENT
  Sex: Female
  Weight: 204.8 kg

DRUGS (4)
  1. BYETTA [Suspect]
     Indication: TYPE 2 DIABETES MELLITUS
     Dosage: 10 UG, 2/D
     Route: 058
     Dates: start: 20070601, end: 20090101
  2. ACTOS [Concomitant]
  3. GLIPIZIDE [Concomitant]
  4. GLUCOPHAGE [Concomitant]

REACTIONS (1)
  - PANCREATIC CARCINOMA [None]
